FAERS Safety Report 7335516-1 (Version None)
Quarter: 2011Q1

REPORT INFORMATION
  Report Type: 
  Country: None (occurrence: None)
  Receive Date: 20110307
  Receipt Date: 20110302
  Transmission Date: 20110831
  Serious: Yes (Life-Threatening, Other)
  Sender: FDA-Public Use
  Company Number: BE-ASTRAZENECA-2011SE11689

PATIENT
  Age: 63 Year
  Sex: Female

DRUGS (2)
  1. CRESTOR [Suspect]
     Indication: HYPERCHOLESTEROLAEMIA
     Route: 048
     Dates: start: 20100101
  2. EMCONCOR [Concomitant]
     Indication: HYPERTENSION

REACTIONS (5)
  - GAMMA-GLUTAMYLTRANSFERASE INCREASED [None]
  - BLOOD TRIGLYCERIDES INCREASED [None]
  - DRUG INEFFECTIVE [None]
  - TRANSAMINASES INCREASED [None]
  - BLOOD CHOLESTEROL INCREASED [None]
